FAERS Safety Report 7921319-3 (Version None)
Quarter: 2011Q4

REPORT INFORMATION
  Report Type: 
  Country: None (occurrence: None)
  Receive Date: 20111117
  Receipt Date: 20111116
  Transmission Date: 20120403
  Serious: No
  Sender: FDA-Public Use
  Company Number: US-B.I. PHARMACEUTICALS,INC./RIDGEFIELD-2011-BP-26338BP

PATIENT
  Sex: Male

DRUGS (3)
  1. SPIRIVA [Suspect]
     Indication: EMPHYSEMA
     Dosage: 18 MCG
     Route: 048
     Dates: start: 20111116, end: 20111116
  2. MEDICATION NOT FURTHER SPECIFIED [Concomitant]
  3. SPIRIVA [Suspect]
     Dosage: 18 MCG
     Dates: start: 20060101

REACTIONS (1)
  - INCORRECT ROUTE OF DRUG ADMINISTRATION [None]
